FAERS Safety Report 21733990 (Version 1)
Quarter: 2022Q4

REPORT INFORMATION
  Report Type: Spontaneous
  Country: US (occurrence: US)
  Receive Date: 20221215
  Receipt Date: 20221215
  Transmission Date: 20230112
  Serious: No
  Sender: FDA-Public Use
  Company Number: US-SUN PHARMACEUTICAL INDUSTRIES LTD-2022R1-358354

PATIENT
  Age: 27 Year
  Sex: Female

DRUGS (1)
  1. WINLEVI [Suspect]
     Active Substance: CLASCOTERONE
     Indication: Acne
     Dosage: 1 PERCENT, DAILY AND THEN EVERY OTHER DAY TO LIMIT SIDE EFFECTS
     Route: 061
     Dates: start: 20220708, end: 20220823

REACTIONS (3)
  - Acne [Recovering/Resolving]
  - Application site reaction [Recovering/Resolving]
  - Therapy cessation [Unknown]

NARRATIVE: CASE EVENT DATE: 20220710
